FAERS Safety Report 12696097 (Version 3)
Quarter: 2017Q2

REPORT INFORMATION
  Report Type: Spontaneous
  Country: US (occurrence: US)
  Receive Date: 20160829
  Receipt Date: 20170505
  Transmission Date: 20170830
  Serious: No
  Sender: FDA-Public Use
  Company Number: US-009507513-1608USA012094

PATIENT
  Age: 50 Year
  Sex: Female

DRUGS (2)
  1. NASONEX [Suspect]
     Active Substance: MOMETASONE FUROATE
     Indication: ANTIALLERGIC THERAPY
     Dosage: 50 MICROGRAM, UNK
     Route: 045
     Dates: start: 2007
  2. NASONEX [Suspect]
     Active Substance: MOMETASONE FUROATE
     Dosage: 50 MICROGRAM, UNK
     Route: 045
     Dates: start: 2007

REACTIONS (6)
  - Drug dose omission [Unknown]
  - Product physical issue [Unknown]
  - Adverse event [Unknown]
  - Tension headache [Not Recovered/Not Resolved]
  - Feeling abnormal [Unknown]
  - Drug effect decreased [Unknown]

NARRATIVE: CASE EVENT DATE: 20170404
